FAERS Safety Report 9201007 (Version 1)
Quarter: 2013Q1

REPORT INFORMATION
  Report Type: Spontaneous
  Country: US (occurrence: None)
  Receive Date: 20130327
  Receipt Date: 20130327
  Transmission Date: 20140127
  Serious: Yes (Hospitalization)
  Sender: FDA-Public Use
  Company Number: 2013P1003502

PATIENT
  Age: 58 Year
  Sex: Male

DRUGS (2)
  1. INFUMORPH [Suspect]
     Indication: PAIN
  2. INFUMORPH [Suspect]
     Indication: BACK PAIN

REACTIONS (8)
  - Post lumbar puncture syndrome [None]
  - Device leakage [None]
  - Influenza like illness [None]
  - Underdose [None]
  - Dehydration [None]
  - Overdose [None]
  - Pain [None]
  - Device failure [None]
